FAERS Safety Report 21655552 (Version 3)
Quarter: 2022Q4

REPORT INFORMATION
  Report Type: Report from Study
  Country: US (occurrence: US)
  Receive Date: 20221129
  Receipt Date: 20221208
  Transmission Date: 20230112
  Serious: Yes (Hospitalization, Other)
  Sender: FDA-Public Use
  Company Number: US-ABBVIE-4216211

PATIENT
  Age: 82 Year
  Sex: Male
  Weight: 77.1 kg

DRUGS (26)
  1. CARBIDOPA\LEVODOPA [Suspect]
     Active Substance: CARBIDOPA\LEVODOPA
     Indication: Parkinson^s disease
     Route: 050
     Dates: start: 20221116, end: 20221125
  2. CARBIDOPA\LEVODOPA [Suspect]
     Active Substance: CARBIDOPA\LEVODOPA
     Route: 050
     Dates: start: 20221127
  3. Carvidopa and Levodopa [Concomitant]
     Indication: Parkinson^s disease
     Dosage: 25MG OVER 100MG
  4. ASPIRIN [Concomitant]
     Active Substance: ASPIRIN
     Indication: Anticoagulant therapy
  5. GABAPENTIN [Concomitant]
     Active Substance: GABAPENTIN
     Indication: Pain in extremity
  6. MELATONIN [Concomitant]
     Active Substance: MELATONIN
     Indication: Sleep disorder
  7. METOPROLOL [Concomitant]
     Active Substance: METOPROLOL
     Indication: Heart rate abnormal
  8. CALCIUM [Concomitant]
     Active Substance: CALCIUM
     Indication: Osteoporosis
  9. MEMANTINE [Concomitant]
     Active Substance: MEMANTINE
     Indication: Sedative therapy
  10. SUCRALFATE [Concomitant]
     Active Substance: SUCRALFATE
     Indication: Dyspepsia
  11. FLUOCINONIDE [Concomitant]
     Active Substance: FLUOCINONIDE
     Indication: Skin cancer
  12. ARICEPT [Concomitant]
     Active Substance: DONEPEZIL HYDROCHLORIDE
     Indication: Dementia
  13. LACTOBACILLUS ACID [Concomitant]
     Indication: Supplementation therapy
  14. OMEPRAZOLE [Concomitant]
     Active Substance: OMEPRAZOLE
     Indication: Dyspepsia
  15. METFORMIN [Concomitant]
     Active Substance: METFORMIN HYDROCHLORIDE
     Indication: Diabetes mellitus
  16. JARDIANCE [Concomitant]
     Active Substance: EMPAGLIFLOZIN
     Indication: Blood glucose abnormal
  17. VENLAFAXINE [Concomitant]
     Active Substance: VENLAFAXINE HYDROCHLORIDE
     Indication: Affective disorder
  18. ATORVASTATIN [Concomitant]
     Active Substance: ATORVASTATIN
     Indication: Blood cholesterol increased
  19. ISOSORBIDE MONONITRATE [Concomitant]
     Active Substance: ISOSORBIDE MONONITRATE
     Indication: Angina pectoris
  20. DILTIAZEM [Concomitant]
     Active Substance: DILTIAZEM
     Indication: Blood pressure measurement
  21. BACLOFEN [Concomitant]
     Active Substance: BACLOFEN
     Indication: Muscle spasms
  22. COENZYME Q10 [Concomitant]
     Active Substance: DIETARY SUPPLEMENT\UBIDECARENONE
     Indication: Musculoskeletal disorder
  23. AMLODIPINE [Concomitant]
     Active Substance: AMLODIPINE BESYLATE
     Indication: Hypertension
  24. CELEBREX [Concomitant]
     Active Substance: CELECOXIB
     Indication: Pain
  25. CITALOPRAM HYDROBROMIDE [Concomitant]
     Active Substance: CITALOPRAM HYDROBROMIDE
     Indication: Affective disorder
  26. ALENDRONATE SODIUM [Concomitant]
     Active Substance: ALENDRONATE SODIUM
     Indication: Osteoporosis

REACTIONS (6)
  - Skin infection [Unknown]
  - Pain [Recovering/Resolving]
  - Stoma site discharge [Recovering/Resolving]
  - Medical device site infection [Not Recovered/Not Resolved]
  - Stoma site haemorrhage [Recovering/Resolving]
  - Kidney infection [Unknown]

NARRATIVE: CASE EVENT DATE: 20221101
